FAERS Safety Report 6263312-5 (Version None)
Quarter: 2009Q3

REPORT INFORMATION
  Report Type: 
  Country: None (occurrence: None)
  Receive Date: 20090710
  Receipt Date: 20090508
  Transmission Date: 20100115
  Serious: No
  Sender: FDA-Public Use
  Company Number: A0783528A

PATIENT

DRUGS (2)
  1. REQUIP XL [Suspect]
     Indication: PARKINSON'S DISEASE
     Dosage: 2MG UNKNOWN
     Route: 048
  2. AZILECT [Concomitant]

REACTIONS (1)
  - TACHYCARDIA [None]
